FAERS Safety Report 8803107 (Version 1)
Quarter: 2012Q4

REPORT INFORMATION
  Report Type: 
  Country: QA (occurrence: QA)
  Receive Date: 20120924
  Receipt Date: 20120924
  Transmission Date: 20130627
  Serious: Yes (Death, Hospitalization)
  Sender: FDA-Public Use
  Company Number: QA-PFIZER INC-2012232303

PATIENT
  Age: 60 Year
  Sex: Female

DRUGS (8)
  1. ATORVASTATIN CALCIUM [Suspect]
     Indication: HYPERLIPIDAEMIA
     Dosage: 20 mg, daily
  2. DEXAMETHASONE SODIUM PHOSPHATE [Interacting]
     Indication: SPINAL CORD COMPRESSION
     Dosage: 8 mg, 2x/day
  3. OMEPRAZOLE [Interacting]
     Indication: PROPHYLAXIS AGAINST GASTROINTESTINAL ULCER
     Dosage: 20 mg, daily
  4. BISACODYL [Concomitant]
     Indication: CONSTIPATION
     Dosage: UNK
  5. CALCIUM CARBONATE [Concomitant]
     Indication: SUPPLEMENTATION THERAPY
     Dosage: UNK
  6. CELECOXIB [Concomitant]
     Indication: BONE PAIN
     Dosage: UNK
  7. GABAPENTIN [Concomitant]
     Indication: NEURALGIA
     Dosage: UNK
  8. TRAMADOL [Concomitant]
     Indication: CANCER PAIN
     Dosage: UNK

REACTIONS (3)
  - Urosepsis [Fatal]
  - Drug interaction [Unknown]
  - Rhabdomyolysis [Unknown]
